FAERS Safety Report 18064913 (Version 4)
Quarter: 2021Q3

REPORT INFORMATION
  Report Type: Spontaneous
  Country: AU (occurrence: AU)
  Receive Date: 20200724
  Receipt Date: 20210831
  Transmission Date: 20211014
  Serious: Yes (Other)
  Sender: FDA-Public Use
  Company Number: AU-EMCURE PHARMACEUTICALS LTD-2020-EPL-000940

PATIENT
  Age: 54 Year
  Sex: Female

DRUGS (16)
  1. CIDOFOVIR. [Suspect]
     Active Substance: CIDOFOVIR
     Indication: POLYOMAVIRUS-ASSOCIATED NEPHROPATHY
  2. TACROLIMUS. [Suspect]
     Active Substance: TACROLIMUS
     Indication: IMMUNOSUPPRESSION
     Dosage: REDUCED TO ACHIEVE A TROUGH OF 3?4 ?G/L
     Dates: start: 201804
  3. BASILIXIMAB [Concomitant]
     Active Substance: BASILIXIMAB
     Indication: IMMUNOSUPPRESSANT DRUG THERAPY
     Dosage: UNK
     Dates: start: 2017
  4. CIPROFLOXACIN (NON?MAH) [Suspect]
     Active Substance: CIPROFLOXACIN
     Dosage: FREQUENCY ?2 IN 1 DAYS  750 MG TWICE DAILY
  5. PREDNISOLONE. [Suspect]
     Active Substance: PREDNISOLONE
     Indication: IMMUNOSUPPRESSION
     Dosage: UNK
  6. CIPROFLOXACIN. [Suspect]
     Active Substance: CIPROFLOXACIN
     Indication: POLYOMAVIRUS-ASSOCIATED NEPHROPATHY
  7. MYCOPHENOLATE MOFETIL. [Concomitant]
     Active Substance: MYCOPHENOLATE MOFETIL
     Indication: IMMUNOSUPPRESSANT DRUG THERAPY
     Dosage: UNK
     Dates: start: 2017
  8. TACROLIMUS. [Suspect]
     Active Substance: TACROLIMUS
     Dosage: MAINTAINED DOSE
  9. LEFLUNOMIDE. [Suspect]
     Active Substance: LEFLUNOMIDE
     Indication: POLYOMAVIRUS-ASSOCIATED NEPHROPATHY
     Dosage: UNK
  10. INTRAVENOUS IMMUNOGLOBULIN [Suspect]
     Active Substance: HUMAN IMMUNOGLOBULIN G
     Indication: POLYOMAVIRUS-ASSOCIATED NEPHROPATHY
  11. LEFLUNOMIDE (NON?MAH) [Concomitant]
     Dosage: ,
  12. CIDOFOVIR. [Suspect]
     Active Substance: CIDOFOVIR
     Indication: POLYOMAVIRUS-ASSOCIATED NEPHROPATHY
     Dosage: 20 MILLIGRAM FORTNIGHTLY INTERVALS FOR EIGHT DOSES
     Dates: start: 201802
  13. CIPROFLOXACIN. [Suspect]
     Active Substance: CIPROFLOXACIN
     Indication: POLYOMAVIRUS-ASSOCIATED NEPHROPATHY
     Dosage: 750 MILLIGRAM, BID
     Dates: start: 201802
  14. EVEROLIMUS. [Concomitant]
     Active Substance: EVEROLIMUS
     Indication: POLYOMAVIRUS-ASSOCIATED NEPHROPATHY
     Dosage: UNK
     Dates: start: 201804
  15. LEFLUNOMIDE. [Suspect]
     Active Substance: LEFLUNOMIDE
     Indication: POLYOMAVIRUS-ASSOCIATED NEPHROPATHY
  16. INTRAVENOUS IMMUNOGLOBULIN [Suspect]
     Active Substance: HUMAN IMMUNOGLOBULIN G
     Indication: POLYOMAVIRUS-ASSOCIATED NEPHROPATHY
     Dosage: INFUSED AT WEEKLY INTERVALS OVER 10 SESSIONS

REACTIONS (4)
  - Treatment failure [Unknown]
  - Condition aggravated [Recovering/Resolving]
  - Drug ineffective [Unknown]
  - Product use in unapproved indication [Unknown]

NARRATIVE: CASE EVENT DATE: 201808
